FAERS Safety Report 9813214 (Version 1)
Quarter: 2014Q1

REPORT INFORMATION
  Report Type: Spontaneous
  Country: DE (occurrence: None)
  Receive Date: 20140109
  Receipt Date: 20140109
  Transmission Date: 20141002
  Serious: Yes (Other)
  Sender: FDA-Public Use
  Company Number: AUR-APL-2014-00111

PATIENT
  Age: 38 Year
  Sex: Female

DRUGS (2)
  1. LAMOTRIGINE (LAMOTRIGINE) [Suspect]
     Indication: PRODUCT USED FOR UNKNOWN INDICATION
     Dates: start: 2009
  2. VENLAFAXINE HYDROCHLORIDE (VENLAFAXINE HYDROCHLORIDE) [Suspect]
     Indication: PRODUCT USED FOR UNKNOWN INDICATION
     Dates: start: 2009

REACTIONS (14)
  - Rapid eye movements sleep abnormal [None]
  - Parasomnia [None]
  - Fatigue [None]
  - Disturbance in attention [None]
  - Hallucination [None]
  - Sleep paralysis [None]
  - Cataplexy [None]
  - Restlessness [None]
  - Screaming [None]
  - Fatigue [None]
  - Somnolence [None]
  - Depression [None]
  - Abnormal dreams [None]
  - Suicide attempt [None]
